FAERS Safety Report 8852594 (Version 2)
Quarter: 2013Q1

REPORT INFORMATION
  Report Type: Spontaneous
  Country: US (occurrence: US)
  Receive Date: 20121022
  Receipt Date: 20130301
  Transmission Date: 20140127
  Serious: Yes (Other)
  Sender: FDA-Public Use
  Company Number: PHEH2012US020222

PATIENT
  Age: 79 Year
  Sex: Female
  Weight: 56.69 kg

DRUGS (7)
  1. DIOVAN HCT [Suspect]
     Indication: HYPERTENSION
     Dosage: 1 DF (160 MG VALS/ 25 MG HCTZ), DAILY
     Route: 048
     Dates: start: 20121012, end: 20121031
  2. CLONAZEPAM [Concomitant]
     Indication: ANXIETY
     Dosage: 0.5 DF (0.5 MG) , QHS
     Route: 048
  3. TRAMADOL [Concomitant]
     Indication: OSTEOARTHRITIS
     Dosage: 50 MG, PRN
  4. SYNTHROID [Concomitant]
     Indication: HYPOTHYROIDISM
     Dosage: 25 UG, QD
  5. ALPRAZOLAM [Concomitant]
     Indication: ANXIETY
     Dosage: 0.25 MG, BID
  6. CALTRATE [Concomitant]
     Indication: OSTEOPENIA
     Dosage: UNK UKN, UNK
  7. VITAMIN D3 1000 [Concomitant]
     Indication: OSTEOPENIA
     Dosage: 1000 IU, DAILY

REACTIONS (6)
  - Breast cancer [Recovered/Resolved]
  - Headache [Recovered/Resolved]
  - Fatigue [Recovered/Resolved]
  - Asthenia [Recovered/Resolved]
  - Feeling abnormal [Unknown]
  - Blood cholesterol increased [Unknown]
